FAERS Safety Report 5943410-3 (Version None)
Quarter: 2008Q4

REPORT INFORMATION
  Report Type: 
  Country: None (occurrence: None)
  Receive Date: 20081105
  Receipt Date: 20081105
  Transmission Date: 20090506
  Serious: Yes (Other)
  Sender: FDA-Public Use
  Company Number: None

PATIENT
  Age: 68 Year
  Sex: Female
  Weight: 83.4619 kg

DRUGS (1)
  1. NIASPAN [Suspect]
     Indication: BLOOD TRIGLYCERIDES INCREASED
     Dosage: 1 500 MG. TAB AT BEDTIME DAILY PO
     Route: 048
     Dates: start: 20081101, end: 20081103

REACTIONS (3)
  - BURNING SENSATION [None]
  - HEAT RASH [None]
  - PRURITUS [None]
